FAERS Safety Report 9237935 (Version 1)
Quarter: 2013Q1

REPORT INFORMATION
  Report Type: Spontaneous
  Country: US (occurrence: None)
  Receive Date: 20121107
  Receipt Date: 20121107
  Transmission Date: 20140127
  Serious: No
  Sender: FDA-Public Use
  Company Number: 2012HGS-003724

PATIENT
  Sex: Female
  Weight: 59.42 kg

DRUGS (7)
  1. BENLYSTA [Suspect]
     Indication: SYSTEMIC LUPUS ERYTHEMATOSUS
     Dosage: 1 IN 28 D
     Route: 041
  2. PLAQUENIL (HYDROXYCHLOROQUINE PHOSPHATE) [Concomitant]
  3. TRAMADOL (TRAMADOL) [Concomitant]
  4. ZANAFLEX (TIZANIDINE HYDROCHLORIDE) [Concomitant]
  5. FUROSEMIDE (FUROSEMIDE) [Concomitant]
  6. ZOFRAN (ONDANSETRON) [Concomitant]
  7. GABAPENTIN (GABAPENTIN) [Concomitant]

REACTIONS (4)
  - Headache [None]
  - Pain in extremity [None]
  - Nausea [None]
  - Diarrhoea [None]
